FAERS Safety Report 13850249 (Version 2)
Quarter: 2017Q3

REPORT INFORMATION
  Report Type: Report from Study
  Country: PL (occurrence: PL)
  Receive Date: 20170809
  Receipt Date: 20170811
  Transmission Date: 20171127
  Serious: Yes (Hospitalization)
  Sender: FDA-Public Use
  Company Number: PL-AMGEN-POLCT2017121060

PATIENT
  Age: 69 Year
  Sex: Male
  Weight: 83.3 kg

DRUGS (14)
  1. ATORVASTATIN [Concomitant]
     Active Substance: ATORVASTATIN
     Indication: DYSLIPIDAEMIA
     Dosage: 40 MG, UNK
     Dates: start: 20130827
  2. FUROSEMID [Concomitant]
     Active Substance: FUROSEMIDE
     Dosage: UNK
     Dates: start: 20170413
  3. PREFILLED AUTOINJECTOR/PEN [Suspect]
     Active Substance: DEVICE
     Indication: DYSLIPIDAEMIA
     Dosage: UNK
     Route: 058
     Dates: start: 20160906
  4. AMIODARON [Concomitant]
     Active Substance: AMIODARONE
     Dosage: UNK
     Dates: start: 20131104
  5. TORASEMID [Concomitant]
     Active Substance: TORSEMIDE
     Dosage: UNK
     Dates: start: 20160906, end: 20170413
  6. PENTOXYFYLLIN [Concomitant]
     Dosage: UNK
     Dates: start: 20131104
  7. TICAGRELOR. [Concomitant]
     Active Substance: TICAGRELOR
     Dosage: UNK
  8. AMLODIPINE [Concomitant]
     Active Substance: AMLODIPINE BESYLATE
     Dosage: UNK
     Dates: start: 20130827, end: 20170413
  9. EPLERENONE. [Concomitant]
     Active Substance: EPLERENONE
     Dosage: UNK
     Dates: start: 20170413
  10. METFORMIN [Concomitant]
     Active Substance: METFORMIN HYDROCHLORIDE
     Dosage: UNK
     Dates: start: 20140808
  11. ASPIRIN. [Concomitant]
     Active Substance: ASPIRIN
     Dosage: UNK
  12. CLOPIDOGREL [Concomitant]
     Active Substance: CLOPIDOGREL BISULFATE
     Dosage: UNK
  13. TRIMETAZIDINE [Concomitant]
     Active Substance: TRIMETAZIDINE
     Dosage: UNK
     Dates: start: 20170420
  14. AMG 145 [Suspect]
     Active Substance: EVOLOCUMAB
     Indication: DYSLIPIDAEMIA
     Dosage: UNK
     Route: 058
     Dates: start: 20160906

REACTIONS (1)
  - Anal stenosis [Recovered/Resolved]

NARRATIVE: CASE EVENT DATE: 20170607
